FAERS Safety Report 10564774 (Version 4)
Quarter: 2014Q4

REPORT INFORMATION
  Report Type: Spontaneous
  Country: GB (occurrence: GB)
  Receive Date: 20141105
  Receipt Date: 20141219
  Transmission Date: 20150529
  Serious: Yes (Disabling, Other)
  Sender: FDA-Public Use
  Company Number: GB-MICRO LABS LIMITED-BB2014-00900

PATIENT
  Age: 63 Year
  Sex: Male

DRUGS (1)
  1. SIMVASTATIN. [Suspect]
     Active Substance: SIMVASTATIN
     Indication: BLOOD CHOLESTEROL INCREASED
     Dosage: DOSE REPORTED AS 25(UNITS NOT SPECIFIED)
     Route: 048
     Dates: start: 2007

REACTIONS (15)
  - Fatigue [Recovered/Resolved]
  - Activities of daily living impaired [Recovered/Resolved]
  - Balance disorder [Recovered/Resolved]
  - Tenderness [Recovered/Resolved]
  - Myalgia [Recovered/Resolved]
  - Impaired work ability [Unknown]
  - Asthenia [Recovered/Resolved]
  - Quality of life decreased [Recovered/Resolved]
  - Psychiatric symptom [Unknown]
  - Social avoidant behaviour [Recovered/Resolved]
  - Drug intolerance [Unknown]
  - Social fear [Unknown]
  - Discomfort [Recovered/Resolved]
  - Frustration [Unknown]
  - Self esteem decreased [Unknown]
